FAERS Safety Report 6126540-5 (Version None)
Quarter: 2009Q1

REPORT INFORMATION
  Report Type: 
  Country: None (occurrence: None)
  Receive Date: 20090320
  Receipt Date: 20090309
  Transmission Date: 20090719
  Serious: Yes (Other)
  Sender: FDA-Public Use
  Company Number: US-PFIZER INC-2009181403

PATIENT
  Sex: Male
  Weight: 127 kg

DRUGS (2)
  1. CELEBREX [Suspect]
     Indication: OSTEOARTHRITIS
     Dosage: 200 MG, 1X/DAY
     Route: 048
  2. BEXTRA [Suspect]
     Indication: OSTEOARTHRITIS

REACTIONS (2)
  - PAIN [None]
  - SKIN CANCER [None]
